FAERS Safety Report 23327369 (Version 2)
Quarter: 2024Q1

REPORT INFORMATION
  Report Type: Report from Study
  Country: CN (occurrence: CN)
  Receive Date: 20231221
  Receipt Date: 20240117
  Transmission Date: 20240409
  Serious: No
  Sender: FDA-Public Use
  Company Number: CN-PFIZER INC-PV202300204047

PATIENT
  Age: 89 Year
  Sex: Female

DRUGS (17)
  1. NIRMATRELVIR\RITONAVIR [Suspect]
     Active Substance: NIRMATRELVIR\RITONAVIR
     Indication: COVID-19 treatment
     Dosage: [NIRMATRELVIR 300 MG]/[RITONAVIR 100 MG]; 2X/DAY
     Route: 048
     Dates: start: 20220528, end: 20220608
  2. OXYGEN [Concomitant]
     Active Substance: OXYGEN
     Indication: COVID-19 treatment
     Dosage: UNK
     Route: 055
     Dates: start: 20220528, end: 20220608
  3. THYMALFASIN [Concomitant]
     Active Substance: THYMALFASIN
     Indication: COVID-19 treatment
     Dosage: UNK
     Route: 058
     Dates: start: 20220528, end: 20220608
  4. ENOXAPARIN SODIUM [Concomitant]
     Active Substance: ENOXAPARIN SODIUM
     Dosage: FOR MEDICAL HISTORY
     Route: 058
     Dates: start: 20220528, end: 20220608
  5. ENTERAL NUTRITIONAL SUSPENSION (TPF) [Concomitant]
     Indication: Nutritional supplementation
     Dosage: NASOGASTRIC
     Dates: start: 20220528, end: 20220529
  6. ENTERAL NUTRITIONAL SUSPENSION (TPF) [Concomitant]
     Dosage: NASOGASTRIC
     Dates: start: 20220529, end: 20220602
  7. ENTERAL NUTRITIONAL SUSPENSION (TPF) [Concomitant]
     Dosage: UNK
     Route: 048
     Dates: start: 20220606, end: 20220608
  8. ATORVASTATIN CALCIUM [Concomitant]
     Active Substance: ATORVASTATIN CALCIUM
     Indication: Lipids increased
     Dosage: NASOGASTRIC
     Dates: start: 20220528, end: 20220608
  9. ASPIRIN [Concomitant]
     Active Substance: ASPIRIN
     Dosage: ENTERIC-COATED TABLETS, NASOGASTRIC FOR MEDICAL HISTORY
     Dates: start: 20220528, end: 20220608
  10. METOPROLOL TARTRATE [Concomitant]
     Active Substance: METOPROLOL TARTRATE
     Indication: Hypertension
     Dosage: NASOGASTRIC
     Dates: start: 20220528, end: 20220608
  11. LACTULOSE [Concomitant]
     Active Substance: LACTULOSE
     Indication: Constipation
     Dosage: NASOGASTRIC
     Dates: start: 20220528, end: 20220608
  12. MAGNESIUM ASPARTATE\POTASSIUM ASPARTATE [Concomitant]
     Active Substance: MAGNESIUM ASPARTATE\POTASSIUM ASPARTATE
     Indication: Prophylaxis
     Dosage: UNK
     Route: 042
     Dates: start: 20220529, end: 20220601
  13. ETORICOXIB [Concomitant]
     Active Substance: ETORICOXIB
     Dosage: FOR MEDICAL HISTORY
     Route: 048
     Dates: start: 20220531, end: 20220608
  14. ACETAMINOPHEN [Concomitant]
     Active Substance: ACETAMINOPHEN
     Indication: COVID-19 treatment
     Dosage: UNK
     Route: 048
     Dates: start: 20220601, end: 20220608
  15. CALCITONIN SALMON [Concomitant]
     Active Substance: CALCITONIN SALMON
     Dosage: FOR MEDICAL HISTORY
     Route: 058
     Dates: start: 20220602
  16. SODIUM POLYSTYRENE SULFONATE [Concomitant]
     Active Substance: SODIUM POLYSTYRENE SULFONATE
     Indication: Blood potassium increased
     Dosage: POWDER, VIA NASOGASTRIC
     Dates: start: 20220602
  17. AMINO ACIDS, SOURCE UNSPECIFIED [Concomitant]
     Active Substance: AMINO ACIDS, SOURCE UNSPECIFIED
     Indication: Nutritional supplementation
     Dosage: UNK
     Route: 042
     Dates: start: 20220603

REACTIONS (1)
  - Overdose [Unknown]
